FAERS Safety Report 15084396 (Version 1)
Quarter: 2018Q2

REPORT INFORMATION
  Report Type: Spontaneous
  Country: FR (occurrence: FR)
  Receive Date: 20180628
  Receipt Date: 20180628
  Transmission Date: 20180711
  Serious: Yes (Death, Hospitalization)
  Sender: FDA-Public Use
  Company Number: FR-MYLANLABS-2018M1047091

PATIENT
  Age: 58 Year
  Sex: Male
  Weight: 106 kg

DRUGS (2)
  1. BROMAZEPAM [Suspect]
     Active Substance: BROMAZEPAM
     Indication: PRODUCT USED FOR UNKNOWN INDICATION
     Dosage: UNK
     Route: 048
     Dates: start: 201805, end: 201805
  2. BISOPROLOL [Suspect]
     Active Substance: BISOPROLOL
     Indication: PRODUCT USED FOR UNKNOWN INDICATION
     Dosage: UNK
     Route: 048
     Dates: start: 201805, end: 201805

REACTIONS (5)
  - Poisoning deliberate [Fatal]
  - Hypotension [Fatal]
  - Cardiogenic shock [Fatal]
  - Bradycardia [Fatal]
  - Coma [Fatal]

NARRATIVE: CASE EVENT DATE: 201805
